FAERS Safety Report 10237108 (Version 1)
Quarter: 2014Q1

REPORT INFORMATION
  Report Type: Spontaneous
  Country: US (occurrence: None)
  Receive Date: 20140306
  Receipt Date: 20140306
  Transmission Date: 20141002
  Serious: Yes (Other)
  Sender: FDA-Public Use
  Company Number: 163-21880-13010267

PATIENT
  Age: 62 Year
  Sex: Male

DRUGS (3)
  1. REVLIMID (LENALIDOMIDE) [Suspect]
     Indication: PLASMA CELL MYELOMA
     Route: 048
     Dates: start: 20121002
  2. MIRTAZAPINE [Concomitant]
  3. METHYLPHENIDATE [Concomitant]

REACTIONS (1)
  - Drug dose omission [None]
